FAERS Safety Report 25436484 (Version 1)
Quarter: 2025Q2

REPORT INFORMATION
  Report Type: Spontaneous
  Country: DE (occurrence: DE)
  Receive Date: 20250614
  Receipt Date: 20250614
  Transmission Date: 20250717
  Serious: Yes (Other)
  Sender: ACCORD
  Company Number: DE-MLMSERVICE-20250528-PI521474-00101-1

PATIENT

DRUGS (2)
  1. CISPLATIN [Suspect]
     Active Substance: CISPLATIN
     Route: 064
     Dates: start: 2018
  2. IFOSFAMIDE [Suspect]
     Active Substance: IFOSFAMIDE
     Route: 064
     Dates: start: 2018

REACTIONS (2)
  - Foetal anaemia [Unknown]
  - Foetal exposure during pregnancy [Unknown]

NARRATIVE: CASE EVENT DATE: 20180101
